FAERS Safety Report 9283719 (Version 1)
Quarter: 2013Q2

REPORT INFORMATION
  Report Type: Spontaneous
  Country: AU (occurrence: AU)
  Receive Date: 20130510
  Receipt Date: 20130510
  Transmission Date: 20140414
  Serious: Yes (Other)
  Sender: FDA-Public Use
  Company Number: AU-GLAXOSMITHKLINE-B0888480A

PATIENT
  Age: 60 Year
  Sex: Male
  Weight: 116 kg

DRUGS (6)
  1. VOTRIENT [Suspect]
     Indication: METASTATIC RENAL CELL CARCINOMA
     Dosage: 800MG PER DAY
     Route: 065
     Dates: start: 20121205
  2. RADIATION THERAPY [Concomitant]
  3. METOCLOPRAMIDE [Concomitant]
     Indication: NAUSEA
     Dosage: 10MG PER DAY
     Dates: start: 20130104
  4. TRAMADOL [Concomitant]
     Indication: PAIN
  5. OXYNORM [Concomitant]
     Indication: PAIN
     Dosage: 5MG PER DAY
     Dates: start: 20130104
  6. PARACETAMOL [Concomitant]
     Indication: PAIN
     Dosage: 500MG PER DAY
     Dates: start: 20121122

REACTIONS (2)
  - Recall phenomenon [Recovered/Resolved]
  - Rash [Unknown]
